FAERS Safety Report 11072146 (Version 1)
Quarter: 2015Q2

REPORT INFORMATION
  Report Type: Spontaneous
  Country: JP (occurrence: JP)
  Receive Date: 20150428
  Receipt Date: 20150428
  Transmission Date: 20150821
  Serious: Yes (Other)
  Sender: FDA-Public Use
  Company Number: JP-SA-2015SA054129

PATIENT
  Age: 33 Year
  Sex: Female

DRUGS (3)
  1. MYSLEE [Suspect]
     Active Substance: ZOLPIDEM TARTRATE
     Indication: PRODUCT USED FOR UNKNOWN INDICATION
     Route: 048
     Dates: start: 20150417, end: 20150417
  2. TROXSIN [Concomitant]
     Route: 048
     Dates: start: 20150417
  3. FENAZOX [Concomitant]
     Active Substance: AMFENAC SODIUM
     Route: 048
     Dates: start: 20150417

REACTIONS (1)
  - Delirium [Recovered/Resolved]

NARRATIVE: CASE EVENT DATE: 20150417
